FAERS Safety Report 4980837-0 (Version None)
Quarter: 2006Q2

REPORT INFORMATION
  Report Type: 
  Country: None (occurrence: None)
  Receive Date: 20060424
  Receipt Date: 20060412
  Transmission Date: 20061013
  Serious: Yes (Hospitalization, Disabling)
  Sender: FDA-Public Use
  Company Number: US-MERCK-0604USA02087

PATIENT
  Age: 37 Year
  Sex: Female
  Weight: 109 kg

DRUGS (5)
  1. VIOXX [Suspect]
     Indication: ANALGESIC EFFECT
     Route: 048
     Dates: start: 20000101, end: 20010701
  2. TOPROL-XL [Concomitant]
     Route: 065
  3. ZESTORETIC [Concomitant]
     Route: 065
  4. ASPIRIN [Concomitant]
     Route: 065
  5. PROCARDIA [Concomitant]
     Route: 065

REACTIONS (2)
  - ANXIETY [None]
  - MYOCARDIAL INFARCTION [None]
